FAERS Safety Report 8348927-2 (Version None)
Quarter: 2012Q2

REPORT INFORMATION
  Report Type: 
  Country: None (occurrence: None)
  Receive Date: 20120510
  Receipt Date: 20120425
  Transmission Date: 20120825
  Serious: Yes (Hospitalization)
  Sender: FDA-Public Use
  Company Number: US-PAR PHARMACEUTICAL, INC-2012SCPR004353

PATIENT

DRUGS (11)
  1. DECADRON [Suspect]
     Indication: CHEMOTHERAPY
     Dosage: 20 MG, EVERY 2 WEEKS
     Route: 042
     Dates: start: 20120208
  2. METFORMIN HCL [Concomitant]
     Indication: PRODUCT USED FOR UNKNOWN INDICATION
     Dosage: UNK, UNKNOWN
     Route: 065
     Dates: start: 20120307
  3. LOVASTATIN [Concomitant]
     Indication: PRODUCT USED FOR UNKNOWN INDICATION
     Dosage: UNK, UNKNOWN
     Route: 065
     Dates: start: 20080101
  4. GS-6624 VS PLACEBO [Suspect]
     Indication: COLORECTAL CANCER
     Dosage: 700 MG, EVERY 2 WEEKS
     Route: 042
     Dates: start: 20120208
  5. FOLFIRI [Suspect]
     Indication: COLORECTAL CANCER
     Dosage: UNK, EVERY 2 WEEKS
     Route: 042
     Dates: start: 20120208
  6. CENTRUM                            /00554501/ [Concomitant]
     Indication: PRODUCT USED FOR UNKNOWN INDICATION
     Dosage: UNK, UNKNOWN
     Route: 065
  7. VITAMIN B12 NOS [Concomitant]
     Indication: PRODUCT USED FOR UNKNOWN INDICATION
     Dosage: UNK, UNKNOWN
     Route: 065
     Dates: start: 20080101
  8. MEGESTROL ACETATE [Suspect]
     Indication: DECREASED APPETITE
     Dosage: 0.400 MG, BID
     Route: 048
     Dates: start: 20120412
  9. KYTRIL [Concomitant]
     Indication: PRODUCT USED FOR UNKNOWN INDICATION
     Dosage: UNK, UNKNOWN
     Route: 065
     Dates: start: 20120208
  10. INSULIN [Concomitant]
     Indication: BLOOD GLUCOSE INCREASED
     Dosage: UNK, UNKNOWN
     Route: 065
     Dates: start: 20120411
  11. ASPIRIN [Concomitant]
     Indication: PRODUCT USED FOR UNKNOWN INDICATION
     Dosage: UNK, UNKNOWN
     Route: 065
     Dates: start: 20080101

REACTIONS (6)
  - BLOOD GLUCOSE INCREASED [None]
  - INFECTION [None]
  - ASTHENIA [None]
  - DEHYDRATION [None]
  - NAUSEA [None]
  - VOMITING [None]
